FAERS Safety Report 4604984-8 (Version None)
Quarter: 2005Q2

REPORT INFORMATION
  Report Type: 
  Country: None (occurrence: None)
  Receive Date: 20050217
  Receipt Date: 20041019
  Transmission Date: 20051028
  Serious: No
  Sender: FDA-Public Use
  Company Number: S04-USA-06990-01

PATIENT
  Sex: Female

DRUGS (8)
  1. NAMENDA [Suspect]
     Indication: AMNESIA
     Dosage: 15 MG QD PO
     Route: 048
     Dates: start: 20041001
  2. NAMENDA [Suspect]
     Indication: AMNESIA
     Dosage: 5 MG QD PO
     Route: 048
     Dates: start: 20040901, end: 20040101
  3. NAMENDA [Suspect]
     Indication: AMNESIA
     Dosage: 5 MG BID PO
     Route: 048
     Dates: start: 20040101, end: 20041001
  4. AMBIEN [Concomitant]
  5. REMERON [Concomitant]
  6. LIBRAX [Concomitant]
  7. NEURONTIN [Concomitant]
  8. VICODIN ES [Concomitant]

REACTIONS (1)
  - MEMORY IMPAIRMENT [None]
